FAERS Safety Report 23621121 (Version 4)
Quarter: 2024Q4

REPORT INFORMATION
  Report Type: Spontaneous
  Country: US (occurrence: US)
  Receive Date: 20240312
  Receipt Date: 20241105
  Transmission Date: 20250115
  Serious: Yes (Other)
  Sender: NOVARTIS
  Company Number: US-002147023-NVSC2024US048911

PATIENT
  Sex: Male

DRUGS (2)
  1. MEKINIST [Suspect]
     Active Substance: TRAMETINIB DIMETHYL SULFOXIDE
     Indication: Bronchial carcinoma
     Dosage: 2 MG, QD (1 TABLET BY MOUTH 1 TIME A DAY FOR 7 DAYS, THEN 7 DAYS OFF.)
     Route: 048
     Dates: start: 202401
  2. TAFINLAR [Suspect]
     Active Substance: DABRAFENIB MESYLATE
     Indication: Bronchial carcinoma
     Dosage: 150 MG, BID (EVERY 12 HOURS, TAKE FOR 7 DAYS ON, 7 DAYS OFF)
     Route: 048
     Dates: start: 202401

REACTIONS (17)
  - Neuropathy peripheral [Unknown]
  - Skin exfoliation [Unknown]
  - Dyskinesia [Unknown]
  - Abdominal discomfort [Unknown]
  - Muscle strain [Unknown]
  - Faeces hard [Unknown]
  - Gastrointestinal pain [Unknown]
  - Tremor [Unknown]
  - Discomfort [Unknown]
  - Hypoaesthesia [Unknown]
  - Paraesthesia [Unknown]
  - Contusion [Unknown]
  - Rash macular [Unknown]
  - Chills [Unknown]
  - Muscle spasms [Unknown]
  - Constipation [Unknown]
  - Product use in unapproved indication [Unknown]
